FAERS Safety Report 9495098 (Version 2)
Quarter: 2013Q4

REPORT INFORMATION
  Report Type: Spontaneous
  Country: US (occurrence: US)
  Receive Date: 20130903
  Receipt Date: 20131003
  Transmission Date: 20140711
  Serious: No
  Sender: FDA-Public Use
  Company Number: US-009507513-1308USA015234

PATIENT
  Age: 16 Year
  Sex: Female
  Weight: 62.13 kg

DRUGS (1)
  1. NEXPLANON [Suspect]
     Indication: CONTRACEPTION
     Dosage: UNK
     Route: 059
     Dates: start: 20130716

REACTIONS (2)
  - Amenorrhoea [Not Recovered/Not Resolved]
  - Metrorrhagia [Recovered/Resolved]
